FAERS Safety Report 18432892 (Version 4)
Quarter: 2022Q3

REPORT INFORMATION
  Report Type: Spontaneous
  Country: CA (occurrence: CA)
  Receive Date: 20201027
  Receipt Date: 20220824
  Transmission Date: 20221026
  Serious: Yes (Other)
  Sender: FDA-Public Use
  Company Number: CA-PFIZER INC-2020408901

PATIENT
  Age: 16 Year
  Sex: Female

DRUGS (7)
  1. GENOTROPIN [Suspect]
     Active Substance: SOMATROPIN
     Indication: Growth hormone deficiency
     Dosage: 6/WEEK
     Route: 058
     Dates: start: 20190906, end: 202010
  2. GENOTROPIN [Suspect]
     Active Substance: SOMATROPIN
     Dosage: 6/WEEK
     Route: 058
     Dates: start: 202010, end: 202010
  3. ALYSENA [Concomitant]
     Indication: Hormone therapy
     Dosage: UNK
  4. DEXAMETHASONE [Concomitant]
     Active Substance: DEXAMETHASONE
     Dosage: UNK, FOR 10 DAYS
  5. VITAMINS NOS [Concomitant]
     Active Substance: VITAMINS
     Dosage: UNK
  6. SYNTHROID [Concomitant]
     Active Substance: LEVOTHYROXINE SODIUM
     Dosage: UNK
  7. VITAMIN D NOS [Concomitant]
     Active Substance: VITAMIN D NOS
     Dosage: 2000 IU EVERY (Q) UNKNOWN
     Route: 065

REACTIONS (1)
  - Meningioma [Not Recovered/Not Resolved]
